FAERS Safety Report 9516377 (Version 1)
Quarter: 2013Q1

REPORT INFORMATION
  Report Type: Spontaneous
  Country: US (occurrence: None)
  Receive Date: 20130305
  Receipt Date: 20130305
  Transmission Date: 20140127
  Serious: Yes (Hospitalization)
  Sender: FDA-Public Use
  Company Number: 163-21880-12113776

PATIENT
  Age: 60 Year
  Sex: Male
  Weight: 77.11 kg

DRUGS (5)
  1. REVLIMID [Suspect]
     Indication: MYELOFIBROSIS
     Dosage: 1 IN 1 D
     Route: 048
     Dates: start: 200811
  2. OXYCODONE HCL [Concomitant]
  3. AUGMENTIN [Concomitant]
  4. OXYCONTIN [Concomitant]
  5. POTASSIUM [Concomitant]

REACTIONS (2)
  - Myelofibrosis [None]
  - Disease progression [None]
